FAERS Safety Report 18189099 (Version 2)
Quarter: 2020Q4

REPORT INFORMATION
  Report Type: Spontaneous
  Country: US (occurrence: US)
  Receive Date: 20200824
  Receipt Date: 20201027
  Transmission Date: 20210113
  Serious: No
  Sender: FDA-Public Use
  Company Number: US-BRISTOL-MYERS SQUIBB COMPANY-BMS-2020-067917

PATIENT
  Sex: Female

DRUGS (1)
  1. ORENCIA [Suspect]
     Active Substance: ABATACEPT
     Indication: PSORIATIC ARTHROPATHY
     Dosage: 125 MILLIGRAM, QWK
     Route: 058
     Dates: start: 20200630

REACTIONS (7)
  - Dyspnoea [Unknown]
  - Urine output decreased [Unknown]
  - Nausea [Unknown]
  - Condition aggravated [Unknown]
  - Back pain [Unknown]
  - Abdominal pain upper [Unknown]
  - Fluid retention [Unknown]
